FAERS Safety Report 4818597-6 (Version None)
Quarter: 2005Q4

REPORT INFORMATION
  Report Type: 
  Country: None (occurrence: None)
  Receive Date: 20051025
  Receipt Date: 20050929
  Transmission Date: 20060501
  Serious: Yes (Other)
  Sender: FDA-Public Use
  Company Number: 2005BH002171

PATIENT
  Age: 67 Year
  Sex: Female

DRUGS (6)
  1. HUMAN ALBUMIN GRIFOLS 20% [Suspect]
     Dates: start: 20020522, end: 20021217
  2. ANTITHROMBIN III (ANTITHROMBIN III) [Suspect]
     Dates: start: 20020101, end: 20020101
  3. HUMAN ALBUMIN GRIFOLS 20% [Suspect]
  4. HUMAN ALBUMIN GRIFOLS 20% [Suspect]
  5. HUMAN ALBUMIN GRIFOLS 20% [Suspect]
  6. HUMAN ALBUMIN GRIFOLS 20% [Suspect]

REACTIONS (3)
  - HEPATITIS C [None]
  - INJURY [None]
  - OCCUPATIONAL PHYSICAL PROBLEM [None]
